FAERS Safety Report 13602923 (Version 11)
Quarter: 2017Q3

REPORT INFORMATION
  Report Type: Report from Study
  Country: FR (occurrence: FR)
  Receive Date: 20170601
  Receipt Date: 20170911
  Transmission Date: 20171127
  Serious: Yes (Other)
  Sender: FDA-Public Use
  Company Number: FR-AMGEN-FRACT2017083655

PATIENT
  Age: 75 Year
  Sex: Female
  Weight: 47 kg

DRUGS (5)
  1. DENOSUMAB [Suspect]
     Active Substance: DENOSUMAB
     Indication: BREAST CANCER
     Dosage: 120 MG, UNK
     Route: 058
     Dates: start: 20110107, end: 20151204
  2. NUX VOMICA [Concomitant]
     Dosage: 1 UNK, UNK
     Route: 048
     Dates: start: 201306
  3. ARSENICUM ALBUM [Concomitant]
     Dosage: 3 UNK, UNK
     Route: 048
     Dates: start: 201306
  4. UVEDOSE [Concomitant]
     Active Substance: CHOLECALCIFEROL
     Dosage: 100000 IU, UNK
     Route: 048
     Dates: start: 20110209
  5. HISTAMINUM [Concomitant]
     Dosage: UNK
     Route: 048
     Dates: start: 201306

REACTIONS (1)
  - Thoracic vertebral fracture [Not Recovered/Not Resolved]

NARRATIVE: CASE EVENT DATE: 20170201
